FAERS Safety Report 23158204 (Version 5)
Quarter: 2024Q1

REPORT INFORMATION
  Report Type: Report from Study
  Country: NL (occurrence: NL)
  Receive Date: 20231108
  Receipt Date: 20240108
  Transmission Date: 20240409
  Serious: Yes (Other)
  Sender: FDA-Public Use
  Company Number: NL-AMGEN-NLDSL2023108303

PATIENT
  Age: 58 Year
  Sex: Male

DRUGS (13)
  1. NPLATE [Suspect]
     Active Substance: ROMIPLOSTIM
     Indication: Immune thrombocytopenia
     Dosage: 500 MICROGRAM, QWK
     Route: 058
  2. NPLATE [Suspect]
     Active Substance: ROMIPLOSTIM
     Dosage: 500 MICROGRAM, QWK
     Route: 058
  3. NPLATE [Suspect]
     Active Substance: ROMIPLOSTIM
     Dosage: 500 MICROGRAM, QWK
     Route: 058
  4. NPLATE [Suspect]
     Active Substance: ROMIPLOSTIM
     Dosage: 500 MILLIGRAM, QWK
     Route: 058
  5. NPLATE [Suspect]
     Active Substance: ROMIPLOSTIM
     Dosage: 500 MICROGRAM, QWK
     Route: 058
  6. NPLATE [Suspect]
     Active Substance: ROMIPLOSTIM
     Dosage: 0.9 MILLILITER, QWK (INCREASED DOSE)
     Route: 058
  7. NPLATE [Suspect]
     Active Substance: ROMIPLOSTIM
     Dosage: UNK, DOSAGE ADJUSTED
     Route: 058
  8. NPLATE [Suspect]
     Active Substance: ROMIPLOSTIM
     Dosage: UNK, DOSAGE ADJUSTED
     Route: 058
  9. NPLATE [Suspect]
     Active Substance: ROMIPLOSTIM
     Dosage: UNK, DOSAGE HAS BEEN INCREASED
     Route: 058
  10. NPLATE [Suspect]
     Active Substance: ROMIPLOSTIM
     Dosage: UNK, DOSAGE HAS BEEN INCREASED
     Route: 058
  11. NPLATE [Suspect]
     Active Substance: ROMIPLOSTIM
     Dosage: UNK, DOSAGE HAS BEEN INCREASED
     Route: 058
  12. NPLATE [Suspect]
     Active Substance: ROMIPLOSTIM
     Dosage: 10 MICROGRAM, DOSAGE HAS BEEN INCREASED
     Route: 058
  13. NPLATE [Suspect]
     Active Substance: ROMIPLOSTIM
     Dosage: 10 MICROGRAM
     Route: 058

REACTIONS (1)
  - Thrombocytopenia [Unknown]

NARRATIVE: CASE EVENT DATE: 20230620
